FAERS Safety Report 8819346 (Version 3)
Quarter: 2012Q4

REPORT INFORMATION
  Report Type: 
  Country: JP (occurrence: JP)
  Receive Date: 20121001
  Receipt Date: 20121227
  Transmission Date: 20130627
  Serious: Yes (Hospitalization)
  Sender: FDA-Public Use
  Company Number: JP-JNJFOC-20120804660

PATIENT
  Age: 72 Year
  Sex: Female
  Weight: 47 kg

DRUGS (13)
  1. SIMPONI [Suspect]
     Indication: RHEUMATOID ARTHRITIS
     Route: 058
  2. SIMPONI [Suspect]
     Indication: RHEUMATOID ARTHRITIS
     Route: 058
     Dates: start: 20120410, end: 201207
  3. MAGLAX [Concomitant]
     Indication: CONSTIPATION
     Route: 048
  4. METOLATE [Concomitant]
     Indication: RHEUMATOID ARTHRITIS
     Route: 048
     Dates: start: 20110805
  5. METOLATE [Concomitant]
     Indication: RHEUMATOID ARTHRITIS
     Route: 048
     Dates: start: 200908
  6. EXFORGE [Concomitant]
     Indication: HYPERTENSION
     Dosage: 1 DF
     Route: 048
  7. BEZATATE [Concomitant]
     Indication: HYPERLIPIDAEMIA
     Route: 048
  8. KIPRES [Concomitant]
     Indication: ASTHMA
     Route: 048
  9. VOGLIBOSE [Concomitant]
     Indication: TYPE 2 DIABETES MELLITUS
     Route: 048
  10. MYSLEE [Concomitant]
     Indication: INSOMNIA
     Route: 048
  11. PURSENNID [Concomitant]
     Indication: CONSTIPATION
     Route: 048
  12. ANTITUSSIVE [Concomitant]
     Indication: ASTHMA
     Route: 048
  13. BAKTAR [Concomitant]
     Route: 048
     Dates: start: 20110419

REACTIONS (1)
  - Acute myocardial infarction [Recovering/Resolving]
